FAERS Safety Report 22629249 (Version 20)
Quarter: 2023Q4

REPORT INFORMATION
  Report Type: Report from Study
  Country: NO (occurrence: None)
  Receive Date: 20230622
  Receipt Date: 20231004
  Transmission Date: 20240110
  Serious: Yes (Hospitalization)
  Sender: FDA-Public Use
  Company Number: NO-Eisai Medical Research-EC-2023-142752

PATIENT
  Age: 70 Year
  Sex: Male
  Weight: 84.6 kg

DRUGS (19)
  1. LENVATINIB [Suspect]
     Active Substance: LENVATINIB
     Indication: Clear cell renal cell carcinoma
     Dosage: STARTING DOSE AT 20 MG, FLUCTUATED DOSAGE
     Route: 048
     Dates: start: 20220106, end: 20221226
  2. LENVATINIB [Suspect]
     Active Substance: LENVATINIB
     Route: 048
     Dates: start: 20221227, end: 20230116
  3. LENVATINIB [Suspect]
     Active Substance: LENVATINIB
     Dosage: 14 MG, DOSE REDUCED
     Route: 048
     Dates: start: 20230117, end: 20230125
  4. LENVATINIB [Suspect]
     Active Substance: LENVATINIB
     Route: 048
     Dates: start: 20230207, end: 20230320
  5. LENVATINIB [Suspect]
     Active Substance: LENVATINIB
     Dosage: 10 MG, DOSE REDUCED
     Route: 048
     Dates: start: 20230518
  6. PEMBROLIZUMAB [Suspect]
     Active Substance: PEMBROLIZUMAB
     Indication: Clear cell renal cell carcinoma
     Route: 041
     Dates: start: 20220106, end: 20221208
  7. PEMBROLIZUMAB [Suspect]
     Active Substance: PEMBROLIZUMAB
     Route: 041
     Dates: start: 20230301, end: 20230301
  8. BELZUTIFAN [Suspect]
     Active Substance: BELZUTIFAN
     Indication: Clear cell renal cell carcinoma
     Dosage: STARTING AT 120 MG, FLUCTUATED DOSE
     Route: 048
     Dates: start: 20220106, end: 20230116
  9. BELZUTIFAN [Suspect]
     Active Substance: BELZUTIFAN
     Route: 048
     Dates: start: 20230117, end: 20230125
  10. BELZUTIFAN [Suspect]
     Active Substance: BELZUTIFAN
     Route: 048
     Dates: start: 20230207
  11. LIPITOR [Concomitant]
     Active Substance: ATORVASTATIN CALCIUM
     Dates: start: 201412
  12. ASPIRIN\MAGNESIUM OXIDE [Concomitant]
     Active Substance: ASPIRIN\MAGNESIUM OXIDE
     Dates: start: 201412
  13. JANUMET [Concomitant]
     Active Substance: METFORMIN HYDROCHLORIDE\SITAGLIPTIN PHOSPHATE
     Dates: start: 201412
  14. METFORMIN [Concomitant]
     Active Substance: METFORMIN HYDROCHLORIDE
     Dates: start: 201412
  15. OXYCODONE HYDROCHLORIDE [Concomitant]
     Active Substance: OXYCODONE HYDROCHLORIDE
     Dates: start: 202111
  16. NOVORAPID [Concomitant]
     Active Substance: INSULIN ASPART
     Route: 058
     Dates: start: 201412
  17. ZOPICLONE [Concomitant]
     Active Substance: ZOPICLONE
     Dates: start: 202111
  18. ACETYLCYSTEINE [Concomitant]
     Active Substance: ACETYLCYSTEINE
     Dates: start: 20221216, end: 20230116
  19. ACETAMINOPHEN [Concomitant]
     Active Substance: ACETAMINOPHEN
     Dates: start: 202111

REACTIONS (2)
  - Colitis [Recovered/Resolved]
  - Hypomagnesaemia [Recovered/Resolved]

NARRATIVE: CASE EVENT DATE: 20221217
